FAERS Safety Report 23191906 (Version 1)
Quarter: 2023Q4

REPORT INFORMATION
  Report Type: Spontaneous
  Country: US (occurrence: US)
  Receive Date: 20231116
  Receipt Date: 20231116
  Transmission Date: 20240110
  Serious: Yes (Death, Hospitalization, Other)
  Sender: FDA-Public Use
  Company Number: US-AMGEN-USASP2023200779

PATIENT

DRUGS (1)
  1. DARBEPOETIN ALFA [Suspect]
     Active Substance: DARBEPOETIN ALFA
     Indication: Anaemia
     Dosage: UNK
     Route: 058

REACTIONS (34)
  - Adverse event [Fatal]
  - Death [Fatal]
  - Peritonitis [Unknown]
  - Pneumonia [Unknown]
  - Hyperkalaemia [Unknown]
  - Acute myocardial infarction [Unknown]
  - Myocardial infarction [Unknown]
  - Cerebrovascular accident [Unknown]
  - Cardiac failure [Unknown]
  - Poisoning [Unknown]
  - Sepsis [Unknown]
  - Gastrointestinal disorder [Unknown]
  - Angiopathy [Unknown]
  - Asthenia [Unknown]
  - Nervous system disorder [Unknown]
  - Connective tissue disorder [Unknown]
  - Mediastinal disorder [Unknown]
  - Cardiac disorder [Unknown]
  - Mental disorder [Unknown]
  - Eye disorder [Unknown]
  - Metabolic disorder [Unknown]
  - Blood disorder [Unknown]
  - Procedural complication [Unknown]
  - Injury [Unknown]
  - Musculoskeletal disorder [Unknown]
  - Respiratory disorder [Unknown]
  - Skin disorder [Unknown]
  - Lymphatic disorder [Unknown]
  - Nasopharyngitis [Unknown]
  - Malnutrition [Unknown]
  - Infection [Unknown]
  - Administration site reaction [Unknown]
  - General symptom [Unknown]
  - Hypertension [Unknown]
